FAERS Safety Report 9081387 (Version 1)
Quarter: 2013Q1

REPORT INFORMATION
  Report Type: Report from Study
  Country: US (occurrence: US)
  Receive Date: 20130130
  Receipt Date: 20130130
  Transmission Date: 20140127
  Serious: No
  Sender: FDA-Public Use
  Company Number: US-ABBOTT-12P-163-0957302-00

PATIENT
  Age: 42 Year
  Sex: Female

DRUGS (11)
  1. HUMIRA 40 MG/0.8 ML PEN [Suspect]
     Dosage: LOADING DOSE
     Dates: start: 20120713, end: 20120713
  2. HUMIRA 40 MG/0.8 ML PEN [Suspect]
     Dosage: LOADING DOSE
     Dates: start: 20120727, end: 20120727
  3. HUMIRA 40 MG/0.8 ML PEN [Suspect]
  4. FLAGYL [Concomitant]
     Indication: PRODUCT USED FOR UNKNOWN INDICATION
  5. ATIVAN [Concomitant]
     Indication: PRODUCT USED FOR UNKNOWN INDICATION
     Dosage: AS NEEDED
  6. ENTOCORT [Concomitant]
     Indication: PRODUCT USED FOR UNKNOWN INDICATION
  7. FLINTSTONES [Concomitant]
     Indication: PRODUCT USED FOR UNKNOWN INDICATION
     Dosage: 1 DAILY
  8. CALCIUM +VIT D [Concomitant]
     Indication: PRODUCT USED FOR UNKNOWN INDICATION
     Dosage: CALCIUM 500MG/VITAMIN D 400UNIT, 3 TIMES DAILY
  9. VITAMIN B12 [Concomitant]
     Indication: PRODUCT USED FOR UNKNOWN INDICATION
     Dosage: WEEKLY
  10. ZOFRAN [Concomitant]
     Indication: PRODUCT USED FOR UNKNOWN INDICATION
  11. ATIVAN [Concomitant]
     Dosage: 1MG TWICE DAILY, AS NEEDED

REACTIONS (15)
  - Hypersomnia [Recovered/Resolved]
  - Pain in extremity [Not Recovered/Not Resolved]
  - Fatigue [Not Recovered/Not Resolved]
  - Impaired work ability [Unknown]
  - Pain of skin [Unknown]
  - Contusion [Not Recovered/Not Resolved]
  - Somnolence [Recovered/Resolved]
  - Headache [Not Recovered/Not Resolved]
  - Hypersensitivity [Unknown]
  - Fatigue [Not Recovered/Not Resolved]
  - Headache [Not Recovered/Not Resolved]
  - Vomiting [Not Recovered/Not Resolved]
  - Back pain [Not Recovered/Not Resolved]
  - Abdominal pain [Not Recovered/Not Resolved]
  - Menorrhagia [Not Recovered/Not Resolved]
